FAERS Safety Report 20455012 (Version 1)
Quarter: 2022Q1

REPORT INFORMATION
  Report Type: Spontaneous
  Country: PL (occurrence: None)
  Receive Date: 20220210
  Receipt Date: 20220210
  Transmission Date: 20220423
  Serious: Yes (Other)
  Sender: FDA-Public Use
  Company Number: 2022A054737

PATIENT
  Age: 44 Year
  Sex: Female

DRUGS (7)
  1. FULVESTRANT [Suspect]
     Active Substance: FULVESTRANT
     Indication: Breast cancer
     Dosage: 500 MG500.0MG UNKNOWN
     Route: 030
     Dates: start: 20211118
  2. FULVESTRANT [Suspect]
     Active Substance: FULVESTRANT
     Indication: Breast cancer
     Dosage: 500 MG500.0MG UNKNOWN
     Route: 030
     Dates: start: 20211019
  3. FULVESTRANT [Suspect]
     Active Substance: FULVESTRANT
     Indication: Breast cancer
     Dosage: 500 MG500.0MG UNKNOWN
     Route: 030
     Dates: start: 20211216, end: 20220118
  4. ALPELISIB [Suspect]
     Active Substance: ALPELISIB
     Indication: Breast cancer
     Dosage: 300 MG, QD (3RD CYCLE)
     Route: 048
     Dates: start: 20211216, end: 20220118
  5. ALPELISIB [Suspect]
     Active Substance: ALPELISIB
     Indication: Breast cancer
     Dosage: 300 MG, QD
     Route: 048
     Dates: start: 20211019
  6. ALPELISIB [Suspect]
     Active Substance: ALPELISIB
     Indication: Breast cancer
     Dosage: 300 MG, QD (2ND CYCLE)
     Route: 048
     Dates: start: 20211118
  7. ZYRTEC [Concomitant]
     Active Substance: CETIRIZINE HYDROCHLORIDE
     Indication: Prophylaxis
     Dosage: 1 DOSAGE FORM, QD
     Route: 065

REACTIONS (8)
  - Hepatomegaly [Unknown]
  - Breast cancer [Unknown]
  - Malignant neoplasm progression [Unknown]
  - Metastases to liver [Unknown]
  - Pyrexia [Recovering/Resolving]
  - Rash macular [Recovering/Resolving]
  - Rash pruritic [Unknown]
  - Diarrhoea [Unknown]

NARRATIVE: CASE EVENT DATE: 20211102
